FAERS Safety Report 6229822-1 (Version None)
Quarter: 2009Q2

REPORT INFORMATION
  Report Type: 
  Country: None (occurrence: None)
  Receive Date: 20090615
  Receipt Date: 20090604
  Transmission Date: 20091009
  Serious: Yes (Other)
  Sender: FDA-Public Use
  Company Number: US-PFIZER INC-2006096744

PATIENT
  Sex: Female

DRUGS (4)
  1. PROVERA [Suspect]
     Indication: HORMONE REPLACEMENT THERAPY
     Dosage: 5 MG, UNK
     Route: 048
     Dates: start: 19910601, end: 19940811
  2. PREMARIN [Suspect]
     Indication: HORMONE REPLACEMENT THERAPY
     Dosage: 0.9 MG, UNK
     Route: 065
     Dates: start: 19910601, end: 19940811
  3. BLOCADREN [Concomitant]
     Indication: ATRIAL TACHYCARDIA
     Dosage: UNK
     Dates: start: 19820101, end: 19980101
  4. LANOXIN [Concomitant]
     Indication: ATRIAL TACHYCARDIA
     Dosage: UNK
     Dates: start: 19820101, end: 19980101

REACTIONS (1)
  - BREAST CANCER FEMALE [None]
